FAERS Safety Report 23364440 (Version 2)
Quarter: 2025Q1

REPORT INFORMATION
  Report Type: Spontaneous
  Country: ES (occurrence: ES)
  Receive Date: 20240104
  Receipt Date: 20250211
  Transmission Date: 20250409
  Serious: Yes (Other)
  Sender: SANDOZ
  Company Number: ES-ROCHE-3222590

PATIENT
  Age: 73 Year
  Sex: Male
  Weight: 53 kg

DRUGS (11)
  1. ATEZOLIZUMAB [Suspect]
     Active Substance: ATEZOLIZUMAB
     Indication: Lung cancer metastatic
     Route: 042
     Dates: start: 20211028
  2. BEVACIZUMAB [Suspect]
     Active Substance: BEVACIZUMAB
     Indication: Lung cancer metastatic
     Route: 065
     Dates: start: 20211028
  3. CARBOPLATIN [Suspect]
     Active Substance: CARBOPLATIN
     Indication: Lung cancer metastatic
     Route: 065
     Dates: start: 20211028
  4. PACLITAXEL [Suspect]
     Active Substance: PACLITAXEL
     Indication: Lung cancer metastatic
     Route: 065
     Dates: start: 20211028
  5. CLOPIDOGREL [Concomitant]
     Active Substance: CLOPIDOGREL BISULFATE
     Indication: Product used for unknown indication
     Dosage: QD
     Route: 065
     Dates: start: 20220425
  6. CYANOCOBALAMIN [Concomitant]
     Active Substance: CYANOCOBALAMIN
     Indication: Product used for unknown indication
     Dosage: QD
     Route: 065
     Dates: start: 20210820
  7. DEXAMETHASONE [Concomitant]
     Active Substance: DEXAMETHASONE
     Indication: Product used for unknown indication
     Dosage: QD
     Route: 065
     Dates: start: 20211027
  8. HIBOR [Concomitant]
     Indication: Product used for unknown indication
     Dosage: 7500 UI
     Route: 065
     Dates: start: 20210820, end: 20220627
  9. IBUPROFEN [Concomitant]
     Active Substance: IBUPROFEN
     Indication: Product used for unknown indication
     Dosage: QD
     Route: 065
     Dates: start: 20220331
  10. OMEPRAZOLE [Concomitant]
     Active Substance: OMEPRAZOLE
     Indication: Product used for unknown indication
     Dosage: QD
     Route: 065
     Dates: start: 20210820
  11. ONDANSETRON [Concomitant]
     Active Substance: ONDANSETRON
     Indication: Product used for unknown indication
     Route: 065
     Dates: start: 20211019

REACTIONS (1)
  - Pneumothorax [Recovered/Resolved]

NARRATIVE: CASE EVENT DATE: 20220627
